FAERS Safety Report 8798607 (Version 1)
Quarter: 2012Q4

REPORT INFORMATION
  Report Type: Report from Study
  Country: US (occurrence: US)
  Receive Date: 20120920
  Receipt Date: 20120920
  Transmission Date: 20130627
  Serious: Yes (Other)
  Sender: FDA-Public Use
  Company Number: US-ABBOTT-12P-163-0980066-00

PATIENT
  Sex: Male
  Weight: 145.28 kg

DRUGS (2)
  1. HUMIRA [Suspect]
     Indication: PSORIASIS
     Dates: start: 2010, end: 20120902
  2. PRILOSEC [Concomitant]
     Indication: DYSPEPSIA

REACTIONS (4)
  - Soft tissue necrosis [Recovering/Resolving]
  - Wound infection staphylococcal [Unknown]
  - Arthropod bite [Unknown]
  - Local swelling [Not Recovered/Not Resolved]
